FAERS Safety Report 6196888-7 (Version None)
Quarter: 2009Q2

REPORT INFORMATION
  Report Type: 
  Country: None (occurrence: None)
  Receive Date: 20090520
  Receipt Date: 20090511
  Transmission Date: 20091009
  Serious: Yes (Disabling)
  Sender: FDA-Public Use
  Company Number: FI-AVENTIS-200912794GDDC

PATIENT
  Age: 80 Year
  Sex: Female

DRUGS (5)
  1. LANTUS [Suspect]
     Route: 058
     Dates: start: 20061001, end: 20090506
  2. NOVORAPID [Concomitant]
     Route: 058
  3. EMCONCOR                           /00802601/ [Concomitant]
     Indication: CORONARY ARTERY DISEASE
     Dosage: DOSE: UNK
     Route: 048
  4. ORMOX [Concomitant]
     Indication: CORONARY ARTERY DISEASE
     Dosage: DOSE: UNK
     Route: 048
  5. PRIMASPAN [Concomitant]
     Indication: CORONARY ARTERY DISEASE
     Dosage: DOSE: UNK
     Route: 048

REACTIONS (9)
  - ABASIA [None]
  - BLOOD PRESSURE DECREASED [None]
  - CONDITION AGGRAVATED [None]
  - FATIGUE [None]
  - OEDEMA PERIPHERAL [None]
  - PAIN IN EXTREMITY [None]
  - SKIN DISORDER [None]
  - SKIN TIGHTNESS [None]
  - SWELLING [None]
